FAERS Safety Report 5026258-6 (Version None)
Quarter: 2006Q2

REPORT INFORMATION
  Report Type: 
  Country: None (occurrence: None)
  Receive Date: 20060608
  Receipt Date: 20060524
  Transmission Date: 20061013
  Serious: Yes (Hospitalization)
  Sender: FDA-Public Use
  Company Number: S06-FRA-02170-01

PATIENT
  Age: 50 Year
  Sex: Male

DRUGS (4)
  1. SEROPLEX (ESCITALOPRAM) [Suspect]
     Indication: DYSTHYMIC DISORDER
     Dosage: 10 MG QD PO
     Route: 048
     Dates: end: 20060313
  2. EQUANIL [Concomitant]
  3. HALDOL [Concomitant]
  4. MEPRONIZINE [Concomitant]

REACTIONS (8)
  - BLOOD OSMOLARITY DECREASED [None]
  - CEREBRAL ATROPHY [None]
  - CONVULSION [None]
  - EPILEPSY [None]
  - HYPOKALAEMIA [None]
  - HYPONATRAEMIA [None]
  - INAPPROPRIATE ANTIDIURETIC HORMONE SECRETION [None]
  - LOSS OF CONSCIOUSNESS [None]
